FAERS Safety Report 24786646 (Version 1)
Quarter: 2024Q4

REPORT INFORMATION
  Report Type: Spontaneous
  Country: IT (occurrence: IT)
  Receive Date: 20241230
  Receipt Date: 20241230
  Transmission Date: 20250114
  Serious: Yes (Life-Threatening, Hospitalization, Other)
  Sender: Norvium Bioscience
  Company Number: IT-Norvium Bioscience LLC-079752

PATIENT
  Age: 82 Year
  Sex: Male

DRUGS (4)
  1. METFORMIN HYDROCHLORIDE [Suspect]
     Active Substance: METFORMIN HYDROCHLORIDE
     Indication: Product used for unknown indication
  2. APIXABAN [Suspect]
     Active Substance: APIXABAN
     Indication: Product used for unknown indication
  3. DIGOXIN [Suspect]
     Active Substance: DIGOXIN
     Indication: Product used for unknown indication
  4. TELMISARTAN [Concomitant]
     Active Substance: TELMISARTAN
     Indication: Product used for unknown indication

REACTIONS (4)
  - Lactic acidosis [Unknown]
  - Acute kidney injury [Recovering/Resolving]
  - Hyperkalaemia [Unknown]
  - Toxicity to various agents [Recovering/Resolving]
